FAERS Safety Report 7957103-4 (Version None)
Quarter: 2011Q4

REPORT INFORMATION
  Report Type: 
  Country: None (occurrence: None)
  Receive Date: 20111205
  Receipt Date: 20111130
  Transmission Date: 20120403
  Serious: Yes (Life-Threatening, Hospitalization, Other)
  Sender: FDA-Public Use
  Company Number: JP-AMGEN-JPNSP2011056894

PATIENT
  Age: 71 Year
  Sex: Female
  Weight: 56 kg

DRUGS (7)
  1. PREDNISOLONE [Concomitant]
     Dosage: UNK
  2. RHEUMATREX [Concomitant]
     Dosage: UNK
  3. CANDESARTAN CILEXETIL [Concomitant]
     Dosage: 8 MG, UNK
  4. EPADEL [Concomitant]
     Dosage: UNK
  5. ENBREL [Suspect]
     Indication: RHEUMATOID ARTHRITIS
     Dosage: 25 MG, 2X/WEEK
     Route: 058
     Dates: start: 20100524, end: 20100816
  6. ENBREL [Suspect]
     Dosage: 25 MG, WEEKLY
     Route: 058
     Dates: start: 20110827
  7. AZULFIDINE [Concomitant]
     Dosage: UNK

REACTIONS (4)
  - DIZZINESS [None]
  - CONTUSION [None]
  - ORTHOSTATIC HYPOTENSION [None]
  - LOSS OF CONSCIOUSNESS [None]
